FAERS Safety Report 11132810 (Version 2)
Quarter: 2015Q2

REPORT INFORMATION
  Report Type: Spontaneous
  Country: US (occurrence: US)
  Receive Date: 20150522
  Receipt Date: 20150528
  Transmission Date: 20150821
  Serious: No
  Sender: FDA-Public Use
  Company Number: US-PFIZER INC-2015165498

PATIENT
  Age: 50 Year
  Sex: Male

DRUGS (17)
  1. COREG [Concomitant]
     Active Substance: CARVEDILOL
     Dosage: 12.5 MG, UNK
     Route: 048
  2. PERCOCET [Concomitant]
     Active Substance: ACETAMINOPHEN\OXYCODONE HYDROCHLORIDE
     Dosage: UNK MG, UNK (OXYCODONE- 5MG/ACETAMINOPHEN-325MG)
     Route: 048
  3. LOPID [Concomitant]
     Active Substance: GEMFIBROZIL
     Dosage: 600 MG, UNK
  4. NITROSTAT [Concomitant]
     Active Substance: NITROGLYCERIN
     Dosage: 0.4 MG, UNK
     Route: 060
  5. PLAVIX [Concomitant]
     Active Substance: CLOPIDOGREL BISULFATE
     Dosage: 75 MG, UNK
     Route: 048
  6. NEURONTIN [Concomitant]
     Active Substance: GABAPENTIN
     Dosage: 600 MG, UNK
     Route: 048
  7. RANEXA [Concomitant]
     Active Substance: RANOLAZINE
     Dosage: 500 MG, UNK
     Route: 048
  8. PROVENTIL [Concomitant]
     Active Substance: ALBUTEROL
     Dosage: 90 ?G, UNK (ACTUATION INHALATION HFA AEROSOL INHALER)
  9. VENTOLIN [Concomitant]
     Active Substance: ALBUTEROL SULFATE
     Dosage: 90 ?G, UNK (ACTUATION INHALATION HFA AEROSOL INHALER)
  10. COLACE [Concomitant]
     Active Substance: DOCUSATE SODIUM
     Dosage: 20 MG, UNK
     Route: 048
  11. ASPIRIN. [Concomitant]
     Active Substance: ASPIRIN
     Dosage: 81 MG, UNK
     Route: 048
  12. NEURONTIN [Concomitant]
     Active Substance: GABAPENTIN
     Dosage: 1200 MG, 3X/DAY, 1200MG TID CURRENTLY
  13. ZESTRIL [Concomitant]
     Active Substance: LISINOPRIL
     Dosage: 5 MG, UNK
     Route: 048
  14. PRINIVIL [Concomitant]
     Active Substance: LISINOPRIL
     Dosage: 5 MG, UNK
     Route: 048
  15. LYRICA [Suspect]
     Active Substance: PREGABALIN
     Dosage: 75 MG, 2X/DAY
     Route: 048
     Dates: start: 20150421
  16. ZYRTEC [Concomitant]
     Active Substance: CETIRIZINE HYDROCHLORIDE
     Dosage: 10 MG, UNK
     Route: 048
  17. DESYREL [Concomitant]
     Active Substance: TRAZODONE HYDROCHLORIDE
     Dosage: 50 MG, UNK
     Route: 048

REACTIONS (1)
  - Sleep apnoea syndrome [Unknown]
